FAERS Safety Report 4842430-X (Version None)
Quarter: 2005Q4

REPORT INFORMATION
  Report Type: 
  Country: None (occurrence: None)
  Receive Date: 20051129
  Receipt Date: 20051116
  Transmission Date: 20060501
  Serious: Yes (Other)
  Sender: FDA-Public Use
  Company Number: GXKR2005US01993

PATIENT
  Age: 76 Year
  Sex: Male

DRUGS (3)
  1. PREDNISONE [Suspect]
     Indication: COLITIS
     Dosage: 10 - 30 MG, QD
  2. MESALAMINE [Concomitant]
  3. SIMVASTATIN [Concomitant]

REACTIONS (1)
  - HYPERGLYCAEMIA [None]
